FAERS Safety Report 14094381 (Version 2)
Quarter: 2017Q4

REPORT INFORMATION
  Report Type: Report from Study
  Country: FR (occurrence: FR)
  Receive Date: 20171016
  Receipt Date: 20171024
  Transmission Date: 20180321
  Serious: Yes (Hospitalization, Disabling, Other)
  Sender: FDA-Public Use
  Company Number: FR-PFIZER INC-2017410710

PATIENT
  Age: 40 Year
  Sex: Female
  Weight: 69 kg

DRUGS (12)
  1. OXYCONTIN [Concomitant]
     Active Substance: OXYCODONE HYDROCHLORIDE
     Dosage: 30 MG IN MORNING AND 40 MG IN EVENING
     Route: 048
     Dates: start: 20170530, end: 20170530
  2. AVELUMAB [Suspect]
     Active Substance: AVELUMAB
     Indication: OESOPHAGEAL ADENOCARCINOMA
     Dosage: 580 MG, ONCE EVERY TWO WEEKS
     Route: 042
     Dates: start: 20170718
  3. OXALIPLATIN. [Suspect]
     Active Substance: OXALIPLATIN
     Dosage: 142.5 MG, CYCLIC
     Route: 042
     Dates: end: 20170628
  4. FLUOROURACIL. [Suspect]
     Active Substance: FLUOROURACIL
     Dosage: UNK
     Route: 042
     Dates: end: 20170628
  5. OXYCONTIN [Concomitant]
     Active Substance: OXYCODONE HYDROCHLORIDE
     Dosage: 40 MG IN MORNING AND 50 MG IN EVENING
     Route: 048
     Dates: start: 20170531
  6. AVELUMAB [Suspect]
     Active Substance: AVELUMAB
     Dosage: 580 MG, ONCE EVERY TWO WEEKS
     Route: 042
  7. OXALIPLATIN. [Suspect]
     Active Substance: OXALIPLATIN
     Dosage: 142.5 MG, CYCLIC
     Route: 042
  8. FLUOROURACIL. [Suspect]
     Active Substance: FLUOROURACIL
     Indication: OESOPHAGEAL ADENOCARCINOMA
     Dosage: 4550 MG, CYCLIC, EVERY 2 WEEKS
     Route: 042
     Dates: start: 20170419
  9. OXYCONTIN [Concomitant]
     Active Substance: OXYCODONE HYDROCHLORIDE
     Indication: ABDOMINAL PAIN
     Dosage: 20 MG, ONCE EVERY TWO WEEKS
     Route: 048
     Dates: start: 20170324, end: 20170529
  10. AVELUMAB [Suspect]
     Active Substance: AVELUMAB
     Dosage: 580 MG, ONCE EVERY TWO WEEKS
     Route: 042
     Dates: end: 20170906
  11. OXALIPLATIN. [Suspect]
     Active Substance: OXALIPLATIN
     Indication: OESOPHAGEAL ADENOCARCINOMA
     Dosage: 142.5 MG, CYCLIC
     Route: 042
     Dates: start: 20170419
  12. LEUCOVORIN /00566701/ [Concomitant]
     Active Substance: LEUCOVORIN
     Indication: OESOPHAGEAL ADENOCARCINOMA
     Dosage: UNK, CYCLIC, EVERY 2 WEEKS
     Route: 042

REACTIONS (2)
  - Myositis [Not Recovered/Not Resolved]
  - Myocarditis [Not Recovered/Not Resolved]

NARRATIVE: CASE EVENT DATE: 20170823
